FAERS Safety Report 15694438 (Version 2)
Quarter: 2019Q1

REPORT INFORMATION
  Report Type: Report from Study
  Country: JP (occurrence: JP)
  Receive Date: 20181206
  Receipt Date: 20190221
  Transmission Date: 20190417
  Serious: Yes (Other)
  Sender: FDA-Public Use
  Company Number: JP-ACTELION-A-CH2018-182779

PATIENT
  Age: 60 Year
  Sex: Female

DRUGS (14)
  1. TRACLEER [Suspect]
     Active Substance: BOSENTAN
     Indication: SCLERODERMA ASSOCIATED DIGITAL ULCER
     Dosage: 62.5 MG, BID
     Route: 048
     Dates: start: 20161018, end: 20181126
  2. SODIUM RABEPRAZOLE [Concomitant]
     Active Substance: RABEPRAZOLE SODIUM
  3. MOSAPRIDE CITRATE [Concomitant]
     Active Substance: MOSAPRIDE CITRATE
  4. ANPLAG [Concomitant]
     Active Substance: SARPOGRELATE
  5. FERRUM [Concomitant]
     Active Substance: FERROUS FUMARATE
  6. ATELEC [Concomitant]
     Active Substance: CILNIDIPINE
  7. BONOTEO [Concomitant]
     Active Substance: MINODRONIC ACID
  8. URSODEOXYCHOLIC ACID [Concomitant]
     Active Substance: URSODIOL
  9. CELECOX [Concomitant]
     Active Substance: CELECOXIB
  10. EDIROL [Concomitant]
     Active Substance: ELDECALCITOL
  11. TRACLEER [Suspect]
     Active Substance: BOSENTAN
     Dosage: 62.5 MG, QD
     Route: 048
     Dates: start: 20151019
  12. JUVELA N [Concomitant]
     Active Substance: TOCOPHERYL NICOTINATE, D-.ALPHA.
  13. TALION [Concomitant]
  14. TRAMCET [Concomitant]
     Active Substance: ACETAMINOPHEN\TRAMADOL

REACTIONS (3)
  - Biopsy bone marrow [Unknown]
  - Aspiration bone marrow [Unknown]
  - Pancytopenia [Not Recovered/Not Resolved]

NARRATIVE: CASE EVENT DATE: 20171204
